FAERS Safety Report 24871232 (Version 1)
Quarter: 2025Q1

REPORT INFORMATION
  Report Type: Spontaneous
  Country: GB (occurrence: GB)
  Receive Date: 20250122
  Receipt Date: 20250122
  Transmission Date: 20250409
  Serious: Yes (Hospitalization, Other)
  Sender: TAKEDA
  Company Number: None

PATIENT
  Age: 69 Year
  Sex: Female
  Weight: 55 kg

DRUGS (10)
  1. ENTYVIO [Suspect]
     Active Substance: VEDOLIZUMAB
     Indication: Colitis
  2. ATORVASTATIN [Concomitant]
     Active Substance: ATORVASTATIN
  3. INDAPAMIDE [Concomitant]
     Active Substance: INDAPAMIDE
  4. PREGABALIN [Concomitant]
     Active Substance: PREGABALIN
  5. LINAGLIPTIN [Concomitant]
     Active Substance: LINAGLIPTIN
  6. MESALAMINE [Concomitant]
     Active Substance: MESALAMINE
  7. PERINDOPRIL [Concomitant]
     Active Substance: PERINDOPRIL
  8. OMEPRAZOLE [Concomitant]
     Active Substance: OMEPRAZOLE
  9. IBUPROFEN [Concomitant]
     Active Substance: IBUPROFEN
     Indication: Pain
     Route: 061
  10. METFORMIN [Concomitant]
     Active Substance: METFORMIN HYDROCHLORIDE

REACTIONS (5)
  - Renal tubular injury [Unknown]
  - Inflammation [Unknown]
  - Blood creatine increased [Unknown]
  - Renal impairment [Unknown]
  - Tubulointerstitial nephritis [Not Recovered/Not Resolved]
